FAERS Safety Report 6267846-9 (Version None)
Quarter: 2009Q3

REPORT INFORMATION
  Report Type: 
  Country: None (occurrence: None)
  Receive Date: 20090714
  Receipt Date: 20090629
  Transmission Date: 20100115
  Serious: Yes (Other)
  Sender: FDA-Public Use
  Company Number: US-GENENTECH-286194

PATIENT
  Age: 27 Year
  Sex: Male

DRUGS (6)
  1. RITUXAN [Suspect]
     Indication: KIDNEY TRANSPLANT REJECTION
     Route: 065
  2. MYCOPHENOLATE MOFETIL [Suspect]
     Indication: PROPHYLAXIS AGAINST TRANSPLANT REJECTION
     Route: 065
  3. GANCICLOVIR [Suspect]
     Indication: PROPHYLAXIS
     Route: 065
  4. ANTITHYMOCYTE GLOBULIN [Suspect]
     Indication: PROPHYLAXIS AGAINST TRANSPLANT REJECTION
     Route: 065
  5. TACROLIMUS [Suspect]
     Indication: PROPHYLAXIS AGAINST TRANSPLANT REJECTION
     Route: 065
  6. CIPROFLOXACIN [Suspect]
     Indication: URINARY TRACT INFECTION
     Route: 065

REACTIONS (5)
  - ADENOVIRUS INFECTION [None]
  - CYSTITIS [None]
  - HYPOGAMMAGLOBULINAEMIA [None]
  - TRANSPLANT REJECTION [None]
  - URINARY TRACT INFECTION [None]
